FAERS Safety Report 8380444-6 (Version None)
Quarter: 2012Q2

REPORT INFORMATION
  Report Type: 
  Country: None (occurrence: None)
  Receive Date: 20120523
  Receipt Date: 20120520
  Transmission Date: 20120825
  Serious: Yes (Hospitalization)
  Sender: FDA-Public Use
  Company Number: US-GLAXOSMITHKLINE-A0966580A

PATIENT
  Age: 25 Year
  Sex: Female

DRUGS (6)
  1. COUMADIN [Concomitant]
     Dosage: 5MG PER DAY
  2. TRACLEER [Concomitant]
     Dosage: 125MG TWICE PER DAY
  3. ASPIRIN [Concomitant]
     Route: 048
  4. LASIX [Concomitant]
     Dosage: 40MG TWICE PER DAY
  5. FLOLAN [Suspect]
     Indication: PULMONARY ARTERIAL HYPERTENSION
     Dosage: 57NGKM SEE DOSAGE TEXT
     Route: 042
     Dates: start: 20081028
  6. REVATIO [Concomitant]
     Dosage: 20MG THREE TIMES PER DAY

REACTIONS (2)
  - ABDOMINAL DISTENSION [None]
  - ABDOMINAL PAIN [None]
